FAERS Safety Report 10231245 (Version 8)
Quarter: 2014Q4

REPORT INFORMATION
  Report Type: Spontaneous
  Country: US (occurrence: US)
  Receive Date: 20140611
  Receipt Date: 20141031
  Transmission Date: 20150528
  Serious: Yes (Hospitalization, Other)
  Sender: FDA-Public Use
  Company Number: US-GLAXOSMITHKLINE-A1039006A

PATIENT
  Age: 63 Year
  Sex: Female

DRUGS (15)
  1. ADVAIR DISKUS [Suspect]
     Active Substance: FLUTICASONE PROPIONATE\SALMETEROL XINAFOATE
     Dosage: 250/50 MCG
     Route: 055
     Dates: start: 20130103
  2. BREO ELLIPTA [Suspect]
     Active Substance: FLUTICASONE FUROATE\VILANTEROL TRIFENATATE
     Indication: RESPIRATORY DISORDER
     Dosage: 100 MCG AND 25 MCG
     Route: 065
     Dates: start: 2014
  3. MEDROL [Concomitant]
     Active Substance: METHYLPREDNISOLONE
  4. ANORO ELLIPTA [Suspect]
     Active Substance: UMECLIDINIUM BROMIDE\VILANTEROL TRIFENATATE
     Indication: CHRONIC OBSTRUCTIVE PULMONARY DISEASE
  5. ALBUTEROL NEBULIZER [Suspect]
     Active Substance: ALBUTEROL
     Indication: PRODUCT USED FOR UNKNOWN INDICATION
     Route: 065
  6. PREDNISONE. [Concomitant]
     Active Substance: PREDNISONE
     Route: 065
  7. MUCINEX [Concomitant]
     Active Substance: GUAIFENESIN
  8. OXYGEN. [Concomitant]
     Active Substance: OXYGEN
  9. IBUPROFEN. [Concomitant]
     Active Substance: IBUPROFEN
  10. FLOVENT [Suspect]
     Active Substance: FLUTICASONE PROPIONATE
     Indication: PRODUCT USED FOR UNKNOWN INDICATION
     Dosage: 44 MCG
     Route: 065
     Dates: start: 20120204
  11. DUONEB [Concomitant]
     Active Substance: ALBUTEROL SULFATE\IPRATROPIUM BROMIDE
  12. VENTOLIN [Suspect]
     Active Substance: ALBUTEROL SULFATE
     Indication: DYSPNOEA
     Route: 065
     Dates: start: 20120123
  13. PROAIR HFA [Concomitant]
     Active Substance: ALBUTEROL SULFATE
  14. ANORO ELLIPTA [Suspect]
     Active Substance: UMECLIDINIUM BROMIDE\VILANTEROL TRIFENATATE
     Indication: DYSPNOEA
     Dosage: 62.5 MCG/25 MCG
     Route: 055
     Dates: start: 201405
  15. UNKNOWN STEROID INHALER [Suspect]
     Active Substance: UNSPECIFIED INGREDIENT
     Indication: PRODUCT USED FOR UNKNOWN INDICATION
     Route: 065

REACTIONS (20)
  - Dyspnoea [Not Recovered/Not Resolved]
  - Drug ineffective [Not Recovered/Not Resolved]
  - Fatigue [Unknown]
  - Mobility decreased [Unknown]
  - Respiratory disorder [Unknown]
  - Dysstasia [Unknown]
  - Drug administration error [Not Recovered/Not Resolved]
  - Spinal fracture [Not Recovered/Not Resolved]
  - Choking sensation [Not Recovered/Not Resolved]
  - Hospitalisation [Unknown]
  - Adverse reaction [Not Recovered/Not Resolved]
  - Blood pressure increased [Not Recovered/Not Resolved]
  - Off label use [Not Recovered/Not Resolved]
  - Nasal obstruction [Unknown]
  - Chest pain [Unknown]
  - Movement disorder [Unknown]
  - Product quality issue [Unknown]
  - Asthenia [Unknown]
  - Malnutrition [Unknown]
  - Arthropod bite [Unknown]

NARRATIVE: CASE EVENT DATE: 20120820
